FAERS Safety Report 9349256 (Version 2)
Quarter: 2013Q2

REPORT INFORMATION
  Report Type: Report from Study
  Country: DE (occurrence: DE)
  Receive Date: 20130614
  Receipt Date: 20130618
  Transmission Date: 20140414
  Serious: Yes (Hospitalization)
  Sender: FDA-Public Use
  Company Number: DE-ABBOTT-13P-062-1102449-00

PATIENT
  Age: 63 Year
  Sex: Female
  Weight: 80 kg

DRUGS (6)
  1. HUMIRA [Suspect]
     Indication: PSORIASIS
     Route: 058
     Dates: start: 20121206
  2. METHOTREXATE [Concomitant]
     Indication: PSORIASIS
     Dates: start: 20130418
  3. BISPROLOL [Concomitant]
     Indication: PRODUCT USED FOR UNKNOWN INDICATION
  4. DOXEPIN [Concomitant]
     Indication: DEPRESSION
  5. SORTIS [Concomitant]
     Indication: PRODUCT USED FOR UNKNOWN INDICATION
  6. ACETYLSALICYLIC ACID [Concomitant]
     Indication: PRODUCT USED FOR UNKNOWN INDICATION

REACTIONS (5)
  - Syncope [Recovered/Resolved]
  - Joint effusion [Unknown]
  - Malaise [Unknown]
  - Carotid artery disease [Unknown]
  - Carotid artery stenosis [Unknown]
